FAERS Safety Report 4563232-8 (Version None)
Quarter: 2005Q1

REPORT INFORMATION
  Report Type: 
  Country: None (occurrence: None)
  Receive Date: 20050125
  Receipt Date: 20050118
  Transmission Date: 20050727
  Serious: Yes (Life-Threatening, Other)
  Sender: FDA-Public Use
  Company Number: FR-2004-037164

PATIENT
  Age: 77 Year
  Sex: Female
  Weight: 95 kg

DRUGS (10)
  1. SOTALOL HCL [Suspect]
     Indication: ATRIAL FIBRILLATION
  2. GLICLAZIDE (GLICLAZIDE) [Suspect]
     Dosage: ORAL
     Route: 048
  3. FUROSEMIDE [Suspect]
     Dosage: 40 MG, ORAL
     Route: 048
  4. PREVISCAN (FLUINDIONE) [Suspect]
     Dosage: 20 MG, ORAL
     Route: 048
  5. COVERSYL (PERINDOPRIL) [Suspect]
     Dosage: 4 MG, ORAL
     Route: 048
  6. EFFEXOR [Suspect]
     Indication: DEPRESSION
     Dosage: 200 MG, 1X/DAY, ORAL
     Route: 048
  7. METFORMIN HCL [Suspect]
     Dosage: 850 MG
  8. PRAVASTATIN [Suspect]
     Dosage: 20 MG
  9. POTASSIUM CHLORIDE [Suspect]
  10. ISOMERIDE (DEXENFLURAMINE HYDROCHLORIDE) [Suspect]

REACTIONS (5)
  - ACUTE MYELOID LEUKAEMIA [None]
  - DRUG INEFFECTIVE [None]
  - DYSPNOEA [None]
  - PANCYTOPENIA [None]
  - PULMONARY HYPERTENSION [None]
